FAERS Safety Report 4886856-7 (Version None)
Quarter: 2006Q1

REPORT INFORMATION
  Report Type: 
  Country: None (occurrence: None)
  Receive Date: 20060119
  Receipt Date: 20060111
  Transmission Date: 20060701
  Serious: Yes (Other)
  Sender: FDA-Public Use
  Company Number: PHBS2005PE16381

PATIENT
  Sex: Male

DRUGS (1)
  1. LAMISIL [Suspect]
     Indication: FUNGAL INFECTION
     Dosage: TOPICAL
     Route: 061
     Dates: start: 20051101

REACTIONS (3)
  - APPLICATION SITE IRRITATION [None]
  - EYE OEDEMA [None]
  - FACE OEDEMA [None]
